FAERS Safety Report 25662927 (Version 1)
Quarter: 2025Q3

REPORT INFORMATION
  Report Type: Spontaneous
  Country: US (occurrence: US)
  Receive Date: 20250811
  Receipt Date: 20250811
  Transmission Date: 20251020
  Serious: No
  Sender: BIOGEN
  Company Number: US-BIOGEN-2025BI01319619

PATIENT
  Sex: Male

DRUGS (6)
  1. AVONEX [Suspect]
     Active Substance: INTERFERON BETA-1A
     Indication: Multiple sclerosis
     Route: 050
  2. AVONEX [Suspect]
     Active Substance: INTERFERON BETA-1A
  3. AVONEX [Suspect]
     Active Substance: INTERFERON BETA-1A
  4. AVONEX [Suspect]
     Active Substance: INTERFERON BETA-1A
  5. MAGNESIUM [Concomitant]
     Active Substance: MAGNESIUM
     Route: 050
  6. VITAMIN B2 [Concomitant]
     Active Substance: RIBOFLAVIN
     Route: 050

REACTIONS (2)
  - Multiple sclerosis [Unknown]
  - Headache [Not Recovered/Not Resolved]
